FAERS Safety Report 13694593 (Version 1)
Quarter: 2017Q2

REPORT INFORMATION
  Report Type: Spontaneous
  Country: DE (occurrence: DE)
  Receive Date: 20170627
  Receipt Date: 20170627
  Transmission Date: 20170830
  Serious: Yes (Other)
  Sender: FDA-Public Use
  Company Number: DE-ELI_LILLY_AND_COMPANY-DE201706007535

PATIENT
  Age: 51 Year
  Sex: Female

DRUGS (1)
  1. FORSTEO [Suspect]
     Active Substance: TERIPARATIDE
     Indication: PRODUCT USED FOR UNKNOWN INDICATION
     Dosage: UNK, UNKNOWN
     Route: 058
     Dates: start: 20170613

REACTIONS (8)
  - Hyperhidrosis [Unknown]
  - Nausea [Unknown]
  - Paronychia [Unknown]
  - Nail discolouration [Unknown]
  - Dizziness [Unknown]
  - Sleep disorder [Unknown]
  - Arrhythmia [Unknown]
  - Headache [Unknown]

NARRATIVE: CASE EVENT DATE: 20170616
